FAERS Safety Report 5767344-2 (Version None)
Quarter: 2008Q2

REPORT INFORMATION
  Report Type: 
  Country: None (occurrence: None)
  Receive Date: 20080612
  Receipt Date: 20080605
  Transmission Date: 20081010
  Serious: Yes (Other)
  Sender: FDA-Public Use
  Company Number: A0728395A

PATIENT
  Sex: Female
  Weight: 127.3 kg

DRUGS (3)
  1. COMBIVIR [Suspect]
     Indication: HIV INFECTION
     Route: 065
     Dates: start: 20080320
  2. ATRIPLA [Concomitant]
     Indication: HIV INFECTION
     Dates: start: 20070122, end: 20080108
  3. KALETRA [Concomitant]
     Indication: HIV INFECTION
     Dates: start: 20080320

REACTIONS (2)
  - ABORTION SPONTANEOUS [None]
  - DRUG EXPOSURE DURING PREGNANCY [None]
